FAERS Safety Report 4835348-X (Version None)
Quarter: 2005Q4

REPORT INFORMATION
  Report Type: 
  Country: None (occurrence: None)
  Receive Date: 20051114
  Receipt Date: 20051102
  Transmission Date: 20060501
  Serious: Yes (Death)
  Sender: FDA-Public Use
  Company Number: P04378

PATIENT
  Age: 50 Year
  Sex: Male

DRUGS (8)
  1. PEG-INTRON [Suspect]
     Indication: HEPATITIS C
     Dosage: SUBCUTANEOUS
     Route: 058
     Dates: start: 20021222, end: 20040106
  2. PEG-INTRON [Suspect]
     Indication: HEPATITIS C
     Dosage: SUBCUTANEOUS
     Route: 058
     Dates: start: 20040610
  3. HEPATITIS C [Suspect]
     Dosage: ORAL
     Route: 048
     Dates: start: 20021222, end: 20040106
  4. HEPATITIS C [Suspect]
     Dosage: ORAL
     Route: 048
     Dates: start: 20040610
  5. OXYCONTIN (OXYCODONE HCL) SUSTAINED RELEASE TABLETS [Concomitant]
  6. PROZAC [Concomitant]
  7. DYAZIDE [Concomitant]
  8. QUINAMM [Concomitant]

REACTIONS (1)
  - DEATH [None]
